FAERS Safety Report 5002563-4 (Version None)
Quarter: 2006Q2

REPORT INFORMATION
  Report Type: 
  Country: None (occurrence: None)
  Receive Date: 20060515
  Receipt Date: 20060406
  Transmission Date: 20061013
  Serious: Yes (Hospitalization)
  Sender: FDA-Public Use
  Company Number: US-MERCK-0604USA00918

PATIENT
  Age: 67 Year
  Sex: Female
  Weight: 100 kg

DRUGS (7)
  1. VIOXX [Suspect]
     Indication: ARTHRITIS
     Route: 048
     Dates: start: 20000101, end: 20041031
  2. FUROSEMIDE [Concomitant]
     Route: 065
  3. GLIPIZIDE [Concomitant]
     Route: 065
  4. NAPROXEN [Concomitant]
     Route: 065
  5. METOPROLOL [Concomitant]
     Route: 065
  6. VICODIN [Concomitant]
     Route: 065
  7. VASOTEC [Concomitant]
     Route: 065

REACTIONS (3)
  - ARTHRALGIA [None]
  - CEREBROVASCULAR ACCIDENT [None]
  - DEPRESSION [None]
